FAERS Safety Report 7072748-4 (Version None)
Quarter: 2010Q4

REPORT INFORMATION
  Report Type: 
  Country: None (occurrence: None)
  Receive Date: 20101029
  Receipt Date: 20100419
  Transmission Date: 20110411
  Serious: No
  Sender: FDA-Public Use
  Company Number: A0848890A

PATIENT
  Age: 76 Year
  Sex: Male

DRUGS (3)
  1. ADVAIR DISKUS 100/50 [Suspect]
     Indication: FLUID RETENTION
     Dosage: 1PUFF TWICE PER DAY
     Route: 055
     Dates: start: 20100101
  2. BLOOD PRESSURE MEDICATION [Concomitant]
  3. UNKNOWN MEDICATION [Concomitant]

REACTIONS (5)
  - ASTHENIA [None]
  - COUGH [None]
  - FLUID RETENTION [None]
  - INCREASED UPPER AIRWAY SECRETION [None]
  - PRODUCT QUALITY ISSUE [None]
